FAERS Safety Report 6687478-8 (Version None)
Quarter: 2010Q2

REPORT INFORMATION
  Report Type: 
  Country: None (occurrence: None)
  Receive Date: 20100416
  Receipt Date: 20100416
  Transmission Date: 20101027
  Serious: Yes (Life-Threatening, Hospitalization, Disabling, Other)
  Sender: FDA-Public Use
  Company Number: None

PATIENT
  Age: 54 Year
  Sex: Male
  Weight: 89.8122 kg

DRUGS (8)
  1. FLUOCINONIDE [Suspect]
     Indication: HERPES ZOSTER
     Dosage: 60 GRAMS DAILY BID TOPICAL
     Route: 061
     Dates: start: 20081001
  2. FLUOCINONIDE [Suspect]
     Indication: BED BUG INFESTATION
     Dosage: 240 GRAMS DAILY FOR 3 DAYS THEN WEEKLY 1X/WK TOPICAL
     Route: 061
     Dates: start: 20081101, end: 20091201
  3. SOMA [Concomitant]
  4. CODEINE SUL TAB [Concomitant]
  5. PROVIGIL [Concomitant]
  6. DIAZEPAM [Concomitant]
  7. LASIX [Concomitant]
  8. ATENELOL [Concomitant]

REACTIONS (7)
  - ACARODERMATITIS [None]
  - DRY SKIN [None]
  - NERVE INJURY [None]
  - PAIN [None]
  - SCAR [None]
  - SKIN HAEMORRHAGE [None]
  - WOUND SECRETION [None]
